FAERS Safety Report 7135031-4 (Version None)
Quarter: 2010Q4

REPORT INFORMATION
  Report Type: 
  Country: None (occurrence: None)
  Receive Date: 20101118
  Receipt Date: 20101112
  Transmission Date: 20110411
  Serious: Yes (Death)
  Sender: FDA-Public Use
  Company Number: WAES 1009USA05602

PATIENT
  Age: 34 Year
  Sex: Female

DRUGS (3)
  1. ISENTRESS [Suspect]
     Indication: HIV INFECTION
     Dosage: PO
     Route: 048
     Dates: start: 20100511, end: 20100925
  2. ALUVIA (LOPINAVIR (+) RITONAVIR) [Suspect]
     Indication: HIV INFECTION
     Dosage: PO
     Route: 048
     Dates: start: 20100511, end: 20100925
  3. CLOTRIMAZOLE [Concomitant]

REACTIONS (15)
  - ABDOMINAL PAIN UPPER [None]
  - ARRHYTHMIA [None]
  - DEHYDRATION [None]
  - DIARRHOEA [None]
  - ELECTROLYTE IMBALANCE [None]
  - GASTROENTERITIS [None]
  - GASTROINTESTINAL HAEMORRHAGE [None]
  - ODYNOPHAGIA [None]
  - OESOPHAGEAL CANDIDIASIS [None]
  - ORAL CANDIDIASIS [None]
  - ORAL HERPES [None]
  - PALPITATIONS [None]
  - PRURITUS [None]
  - RASH PAPULAR [None]
  - VOMITING [None]
